FAERS Safety Report 9652163 (Version 1)
Quarter: 2013Q4

REPORT INFORMATION
  Report Type: Spontaneous
  Country: US (occurrence: None)
  Receive Date: 20131028
  Receipt Date: 20131028
  Transmission Date: 20140711
  Serious: Yes (Other)
  Sender: FDA-Public Use
  Company Number: None

PATIENT
  Age: 34 Year
  Sex: Female
  Weight: 91.63 kg

DRUGS (5)
  1. CLONAZEPAM [Suspect]
     Dosage: 1MG 7 TID ORALLY
     Route: 048
     Dates: start: 20131016, end: 20131016
  2. KLONPIN [Concomitant]
  3. WELLBUTRIN XL [Concomitant]
  4. SERZONE [Concomitant]
  5. NEURITON [Concomitant]

REACTIONS (3)
  - Anxiety [None]
  - Anger [None]
  - Condition aggravated [None]
